FAERS Safety Report 21961432 (Version 2)
Quarter: 2023Q1

REPORT INFORMATION
  Report Type: Spontaneous
  Country: TW (occurrence: None)
  Receive Date: 20230207
  Receipt Date: 20230214
  Transmission Date: 20230417
  Serious: Yes (Other)
  Sender: FDA-Public Use
  Company Number: TW-Unichem Pharmaceuticals (USA) Inc-UCM202301-000138

PATIENT
  Age: 41 Year
  Sex: Female

DRUGS (20)
  1. DIVALPROEX SODIUM [Suspect]
     Active Substance: DIVALPROEX SODIUM
     Indication: Schizophrenia
     Dates: start: 20220602, end: 20220605
  2. DIVALPROEX SODIUM [Suspect]
     Active Substance: DIVALPROEX SODIUM
     Dates: start: 20220606, end: 20220608
  3. DIVALPROEX SODIUM [Suspect]
     Active Substance: DIVALPROEX SODIUM
     Dates: start: 20220530, end: 20220601
  4. DIVALPROEX SODIUM [Suspect]
     Active Substance: DIVALPROEX SODIUM
     Dates: start: 20220613
  5. DIVALPROEX SODIUM [Suspect]
     Active Substance: DIVALPROEX SODIUM
     Dates: start: 20220620, end: 20220626
  6. PAXLOVID [Suspect]
     Active Substance: NIRMATRELVIR\RITONAVIR
     Indication: COVID-19
     Dosage: ONE DOSE OF PAXLOVID (RITONAVIR 100 MG AND NIRMATRELVIR 150 MG)
     Dates: start: 20220602, end: 20220602
  7. PAXLOVID [Suspect]
     Active Substance: NIRMATRELVIR\RITONAVIR
     Dosage: TWO DOSE OF PAXLOVID (RITONAVIR 100 MG AND NIRMATRELVIR 150 MG)
     Dates: start: 20220603, end: 20220606
  8. PAXLOVID [Suspect]
     Active Substance: NIRMATRELVIR\RITONAVIR
     Dosage: ONE DOSE OF PAXLOVID (RITONAVIR 100 MG AND NIRMATRELVIR 150 MG)
     Dates: start: 20220607, end: 20220607
  9. CLOZAPINE [Suspect]
     Active Substance: CLOZAPINE
     Indication: Schizophrenia
  10. CLOZAPINE [Suspect]
     Active Substance: CLOZAPINE
     Indication: Mania
  11. CLOZAPINE [Suspect]
     Active Substance: CLOZAPINE
     Dates: start: 20220601, end: 20220601
  12. CLOZAPINE [Suspect]
     Active Substance: CLOZAPINE
     Dates: start: 20220602, end: 20220602
  13. CLOZAPINE [Suspect]
     Active Substance: CLOZAPINE
     Dates: start: 20220603, end: 20220604
  14. CLOZAPINE [Suspect]
     Active Substance: CLOZAPINE
     Dates: start: 20220530
  15. CLOZAPINE [Suspect]
     Active Substance: CLOZAPINE
     Dates: start: 20220620, end: 20220626
  16. CLOZAPINE [Suspect]
     Active Substance: CLOZAPINE
     Dates: start: 20220613, end: 20220613
  17. FLUVOXAMINE [Suspect]
     Active Substance: FLUVOXAMINE
     Indication: Schizophrenia
     Dates: start: 20220530, end: 20220601
  18. FLUVOXAMINE [Suspect]
     Active Substance: FLUVOXAMINE
     Dates: start: 20220620, end: 20220626
  19. HALOPERIDOL [Concomitant]
     Active Substance: HALOPERIDOL
     Indication: Schizophrenia
     Dosage: UNKNOWN
  20. PALIPERIDONE [Concomitant]
     Active Substance: PALIPERIDONE
     Indication: Schizophrenia

REACTIONS (3)
  - Neutropenia [Recovering/Resolving]
  - Drug interaction [Unknown]
  - Product dose omission issue [Unknown]
